FAERS Safety Report 5030009-9 (Version None)
Quarter: 2006Q2

REPORT INFORMATION
  Report Type: 
  Country: None (occurrence: None)
  Receive Date: 20060614
  Receipt Date: 20060525
  Transmission Date: 20061013
  Serious: Yes (Death, Hospitalization, Other)
  Sender: FDA-Public Use
  Company Number: CA200605005265

PATIENT
  Age: 84 Year
  Sex: Female

DRUGS (11)
  1. FORTEO [Suspect]
     Indication: OSTEOPOROSIS
     Dosage: 20 UG, DAILY (1/D)
     Dates: start: 20060424
  2. FORTEO PEN (250 MCG/ML) (FORTEO PEN 250 MCG/ML) [Concomitant]
  3. EFFEXOR [Concomitant]
  4. FENTANYL [Concomitant]
  5. LASIX [Concomitant]
  6. COLCHICUM JTL LIQ [Concomitant]
  7. ACETAMINOPHEN [Concomitant]
  8. PLAVIX [Concomitant]
  9. ALLOPURINOL [Concomitant]
  10. FOSAMAX/ITA/(ALENDRONATE SODIUM) [Concomitant]
  11. LOSEC (OMEPRAZOLE) [Concomitant]

REACTIONS (13)
  - ABDOMINAL PAIN UPPER [None]
  - ASPARTATE AMINOTRANSFERASE INCREASED [None]
  - ASTHENIA [None]
  - BLOOD BILIRUBIN INCREASED [None]
  - CONSTIPATION [None]
  - DEHYDRATION [None]
  - DIARRHOEA [None]
  - ELECTROLYTE IMBALANCE [None]
  - HYPOGLYCAEMIA [None]
  - HYPOKALAEMIA [None]
  - HYPOMAGNESAEMIA [None]
  - HYPOTENSION [None]
  - JAUNDICE [None]
